FAERS Safety Report 14089240 (Version 2)
Quarter: 2024Q2

REPORT INFORMATION
  Report Type: Other
  Country: DE (occurrence: DE)
  Receive Date: 20171014
  Receipt Date: 20240404
  Transmission Date: 20240716
  Serious: Yes (Hospitalization, Other)
  Sender: FDA-Public Use
  Company Number: DE-GLENMARK PHARMACEUTICALS-2017GMK029170

PATIENT

DRUGS (18)
  1. TOPIRAMATE [Suspect]
     Active Substance: TOPIRAMATE
     Indication: Epilepsy
     Dosage: 60 MG, BID
     Route: 048
  2. TOPIRAMATE [Suspect]
     Active Substance: TOPIRAMATE
     Dosage: 240 MG MILLIGRAM(S) EVERY DAY
     Route: 048
  3. SULTHIAME [Suspect]
     Active Substance: SULTHIAME
     Indication: Epilepsy
     Dosage: 200 MILLIGRAM, OD
     Route: 048
  4. ALBUTEROL [Suspect]
     Active Substance: ALBUTEROL
     Indication: Epilepsy
     Dosage: 1 DF, QID (4 DF EVERY 2 DAYS)
     Route: 065
  5. ALBUTEROL [Suspect]
     Active Substance: ALBUTEROL
     Dosage: 4 DOSAGE FORM, EVERY 2 DAYS
     Route: 065
  6. VALPROATE SODIUM [Suspect]
     Active Substance: VALPROATE SODIUM
     Indication: Epilepsy
     Dosage: 825 MILLIGRAM, OD; 825 MG MILLIGRAM(S) EVERY DAY
     Route: 048
  7. VALPROATE SODIUM [Suspect]
     Active Substance: VALPROATE SODIUM
     Dosage: 1075 MILLIGRAM, OD; DAILY DOSE: 1075 MG MILLIGRAM(S) EVERY DAY
     Route: 048
  8. CLOBAZAM [Suspect]
     Active Substance: CLOBAZAM
     Indication: Epilepsy
     Dosage: 11 MILLIGRAM, OD; DOSAGE FORM: UNSPECIFIED, 3-0-8
     Route: 048
  9. CLOBAZAM [Suspect]
     Active Substance: CLOBAZAM
     Dosage: 7 MILLIGRAM, OD
     Route: 048
  10. CLOBAZAM [Suspect]
     Active Substance: CLOBAZAM
     Dosage: 9 MILLIGRAM
     Route: 048
  11. MELATONIN [Concomitant]
     Active Substance: MELATONIN
     Indication: Product used for unknown indication
     Dosage: 6 MG, OD
     Route: 065
  12. SULTHIAME [Concomitant]
     Active Substance: SULTHIAME
     Indication: Epilepsy
     Dosage: 100 MG, BID
     Route: 048
  13. CLOBAZAM [Concomitant]
     Active Substance: CLOBAZAM
     Indication: Epilepsy
     Dosage: 3-0-8 MG, BID
     Route: 048
  14. VALPROIC ACID [Concomitant]
     Active Substance: VALPROIC ACID
     Indication: Epilepsy
     Dosage: 475-0-600 MG, BID
     Route: 048
  15. HYDROCORTISON                      /00028601/ [Concomitant]
     Indication: Product used for unknown indication
     Dosage: 5-2.5-2.5 MG, TID
     Route: 065
  16. HYDROCORTISON                      /00028601/ [Concomitant]
     Dosage: 10 MILLIGRAM, OD; DOSAGE FORM: UNSPECIFIED, 5-2.5-2.5
     Route: 065
  17. LEVOTHYROXINE SODIUM [Concomitant]
     Active Substance: LEVOTHYROXINE SODIUM
     Indication: Product used for unknown indication
     Dosage: 50 ?G, OD
     Route: 065
  18. ALBUTEROL [Concomitant]
     Active Substance: ALBUTEROL
     Indication: Epilepsy
     Dosage: 1 DOSAGE FORM, QID, 1 DF, QID (4 DF EVERY 2 DAYS)
     Route: 065

REACTIONS (4)
  - Bronchitis [Recovering/Resolving]
  - Drug intolerance [Unknown]
  - Epilepsy [Recovered/Resolved]
  - Disturbance in attention [Recovered/Resolved]

NARRATIVE: CASE EVENT DATE: 20160703
